FAERS Safety Report 6346356-4 (Version None)
Quarter: 2009Q3

REPORT INFORMATION
  Report Type: 
  Country: None (occurrence: None)
  Receive Date: 20090909
  Receipt Date: 20090827
  Transmission Date: 20100115
  Serious: Yes (Hospitalization)
  Sender: FDA-Public Use
  Company Number: PL-PFIZER INC-2009258469

PATIENT
  Age: 58 Year

DRUGS (13)
  1. BLINDED *NO SUBJECT DRUG [Suspect]
     Indication: PULMONARY ARTERIAL HYPERTENSION
     Dosage: UNK
     Route: 048
     Dates: start: 20090707, end: 20090722
  2. BLINDED SILDENAFIL CITRATE [Suspect]
     Indication: PULMONARY ARTERIAL HYPERTENSION
     Dosage: UNK
     Route: 048
     Dates: start: 20090707, end: 20090722
  3. BLINDED *NO SUBJECT DRUG [Suspect]
     Dosage: UNK
     Route: 048
     Dates: start: 20090725, end: 20090727
  4. BLINDED SILDENAFIL CITRATE [Suspect]
     Dosage: UNK
     Route: 048
     Dates: start: 20090725, end: 20090727
  5. BLINDED *NO SUBJECT DRUG [Suspect]
     Dosage: UNK
     Route: 048
     Dates: start: 20090729, end: 20090730
  6. BLINDED SILDENAFIL CITRATE [Suspect]
     Dosage: UNK
     Route: 048
     Dates: start: 20090729, end: 20090730
  7. BLINDED *NO SUBJECT DRUG [Suspect]
     Dosage: 20 MG, UNK
     Dates: start: 20090820, end: 20090820
  8. BLINDED SILDENAFIL CITRATE [Suspect]
     Dosage: 20 MG, UNK
     Dates: start: 20090820, end: 20090820
  9. LETROX [Concomitant]
     Dosage: UNK
     Route: 048
  10. ISOPTIN [Concomitant]
     Dosage: UNK
     Route: 048
  11. TERTENSIF [Concomitant]
     Dosage: UNK
     Route: 048
  12. PRESTARIUM [Concomitant]
     Dosage: UNK
     Route: 048
  13. KALIPOZ-PROLONGATUM [Concomitant]
     Dosage: UNK
     Route: 048

REACTIONS (1)
  - DRUG HYPERSENSITIVITY [None]
